FAERS Safety Report 11686047 (Version 5)
Quarter: 2017Q1

REPORT INFORMATION
  Report Type: Report from Study
  Country: FR (occurrence: FR)
  Receive Date: 20151030
  Receipt Date: 20170302
  Transmission Date: 20170428
  Serious: Yes (Other)
  Sender: FDA-Public Use
  Company Number: FR-ROCHE-1599245

PATIENT

DRUGS (10)
  1. SOFOSBUVIR [Suspect]
     Active Substance: SOFOSBUVIR
     Indication: HEPATITIS C
     Route: 065
  2. SIMEPREVIR [Suspect]
     Active Substance: SIMEPREVIR
     Indication: IMMUNOSUPPRESSION
     Route: 065
  3. LEDIPASVIR [Suspect]
     Active Substance: LEDIPASVIR
     Indication: HEPATITIS C
     Route: 065
  4. PEG-INTERFERON ALFA 2A [Suspect]
     Active Substance: PEGINTERFERON ALFA-2A
     Indication: HEPATITIS C
     Route: 065
  5. CYCLOSPORINE. [Suspect]
     Active Substance: CYCLOSPORINE
     Indication: IMMUNOSUPPRESSION
     Route: 065
  6. MYCOPHENOLATE MOFETIL. [Suspect]
     Active Substance: MYCOPHENOLATE MOFETIL
     Indication: IMMUNOSUPPRESSION
     Route: 065
  7. RIBAVIRIN. [Suspect]
     Active Substance: RIBAVIRIN
     Indication: HEPATITIS C
     Route: 065
  8. TACROLIMUS. [Suspect]
     Active Substance: TACROLIMUS
     Indication: IMMUNOSUPPRESSION
     Route: 065
  9. DACLATASVIR. [Suspect]
     Active Substance: DACLATASVIR
     Indication: HEPATITIS C
     Route: 065
  10. EVEROLIMUS [Suspect]
     Active Substance: EVEROLIMUS
     Indication: IMMUNOSUPPRESSION
     Route: 065

REACTIONS (23)
  - Peritonitis bacterial [Unknown]
  - Malnutrition [Unknown]
  - Anaemia [Unknown]
  - Asthenia [Unknown]
  - Urinary tract infection [Unknown]
  - Thrombocytopenia [Unknown]
  - Renal failure [Unknown]
  - Cardiac failure [Unknown]
  - Infection [Unknown]
  - Cytomegalovirus infection [Unknown]
  - Hepatic encephalopathy [Unknown]
  - Leukopenia [Unknown]
  - Pneumonia [Unknown]
  - Hypertension [Unknown]
  - Treatment failure [Unknown]
  - Ascites [Unknown]
  - Neutropenia [Unknown]
  - Myocardial ischaemia [Unknown]
  - Transplant rejection [Recovered/Resolved]
  - Psoriasis [Unknown]
  - Sepsis [Unknown]
  - Fungal infection [Unknown]
  - Hyperbilirubinaemia [Unknown]
